FAERS Safety Report 4584612-0 (Version None)
Quarter: 2005Q1

REPORT INFORMATION
  Report Type: 
  Country: None (occurrence: None)
  Receive Date: 20050216
  Receipt Date: 20050210
  Transmission Date: 20050727
  Serious: Yes (Hospitalization)
  Sender: FDA-Public Use
  Company Number: GR-MERCK-0502GRC00009

PATIENT
  Age: 50 Year

DRUGS (2)
  1. FOSAMAX [Suspect]
     Route: 048
  2. CALCIUM CARBONATE AND CHOLECALCIFEROL [Concomitant]
     Route: 048

REACTIONS (1)
  - HEPATITIS [None]
